FAERS Safety Report 8419255-1 (Version None)
Quarter: 2012Q2

REPORT INFORMATION
  Report Type: 
  Country: None (occurrence: None)
  Receive Date: 20120530
  Receipt Date: 20120518
  Transmission Date: 20120825
  Serious: Yes (Hospitalization)
  Sender: FDA-Public Use
  Company Number: 217595

PATIENT

DRUGS (1)
  1. INNOHEP [Suspect]
     Indication: THROMBOSIS PROPHYLAXIS

REACTIONS (5)
  - SURGICAL PROCEDURE REPEATED [None]
  - POST PROCEDURAL HAEMORRHAGE [None]
  - THORACOTOMY [None]
  - NERVOUS SYSTEM DISORDER [None]
  - EMBOLISM [None]
